FAERS Safety Report 9776783 (Version 1)
Quarter: 2013Q4

REPORT INFORMATION
  Report Type: Report from Study
  Country: CA (occurrence: CA)
  Receive Date: 20131220
  Receipt Date: 20131220
  Transmission Date: 20140711
  Serious: Yes (Other)
  Sender: FDA-Public Use
  Company Number: CA-UCBSA-106474

PATIENT
  Age: 56 Year
  Sex: Male

DRUGS (4)
  1. CIMZIA [Suspect]
     Indication: PSORIATIC ARTHROPATHY
     Route: 058
     Dates: start: 20120131
  2. CIMZIA [Suspect]
     Indication: PSORIATIC ARTHROPATHY
     Route: 058
     Dates: start: 20111219, end: 20120117
  3. VOLTAREN [Concomitant]
     Indication: ARTHRALGIA
     Dosage: AS REQUIRED
     Route: 048
  4. ELOCOM CREAM [Concomitant]
     Indication: PSORIASIS
     Dosage: TWICE A DAY LOCAL APPLICATION

REACTIONS (1)
  - Psoriasis [Not Recovered/Not Resolved]
